FAERS Safety Report 25022071 (Version 3)
Quarter: 2025Q2

REPORT INFORMATION
  Report Type: Spontaneous
  Country: NO (occurrence: NO)
  Receive Date: 20250228
  Receipt Date: 20250526
  Transmission Date: 20250716
  Serious: Yes (Life-Threatening, Hospitalization, Other)
  Sender: NOVO NORDISK
  Company Number: NO-NOVOPROD-1374377

PATIENT
  Age: 45 Year
  Sex: Female
  Weight: 85.2 kg

DRUGS (5)
  1. WEGOVY [Suspect]
     Active Substance: SEMAGLUTIDE
     Indication: Product used for unknown indication
     Dosage: 1 MG, QW
     Dates: start: 20240501, end: 20241001
  2. FOLIC ACID [Concomitant]
     Active Substance: FOLIC ACID
     Indication: Hypovitaminosis
     Route: 048
     Dates: start: 202410
  3. AMITRIPTYLINE HYDROCHLORIDE [Concomitant]
     Active Substance: AMITRIPTYLINE HYDROCHLORIDE
     Indication: Migraine
     Route: 048
  4. ETHINYL ESTRADIOL\ETONOGESTREL [Concomitant]
     Active Substance: ETHINYL ESTRADIOL\ETONOGESTREL
     Indication: Contraception
  5. MELATONIN [Concomitant]
     Active Substance: MELATONIN
     Indication: Insomnia

REACTIONS (2)
  - Pulmonary embolism [Recovered/Resolved]
  - Cor pulmonale acute [Recovered/Resolved]

NARRATIVE: CASE EVENT DATE: 20241013
